FAERS Safety Report 5885161-X (Version None)
Quarter: 2008Q3

REPORT INFORMATION
  Report Type: 
  Country: None (occurrence: None)
  Receive Date: 20080915
  Receipt Date: 20080915
  Transmission Date: 20090109
  Serious: Yes (Life-Threatening, Disabling)
  Sender: FDA-Public Use
  Company Number: None

PATIENT
  Age: 54 Year
  Sex: Male
  Weight: 72.5755 kg

DRUGS (1)
  1. CLINDAMYCIN HCL [Suspect]
     Indication: TOOTHACHE
     Dosage: ONE TABLET EVERY 6 JHOURS DENTAL
     Route: 004
     Dates: start: 20080828, end: 20080907

REACTIONS (6)
  - ABDOMINAL PAIN UPPER [None]
  - ANGINA PECTORIS [None]
  - DIARRHOEA [None]
  - GASTROINTESTINAL DISORDER [None]
  - HYPERTENSION [None]
  - NAUSEA [None]
